FAERS Safety Report 6959288-5 (Version None)
Quarter: 2010Q3

REPORT INFORMATION
  Report Type: 
  Country: None (occurrence: None)
  Receive Date: 20100831
  Receipt Date: 20100818
  Transmission Date: 20110219
  Serious: No
  Sender: FDA-Public Use
  Company Number: US-PFIZER INC-2010104389

PATIENT
  Sex: Female

DRUGS (2)
  1. XALATAN [Suspect]
     Indication: GLAUCOMA
     Dosage: 2.5 ML, 2X/DAY
     Route: 047
     Dates: start: 20020101
  2. XALATAN [Suspect]
     Dosage: UNK, 1X/DAY
     Route: 047
     Dates: start: 20020101

REACTIONS (1)
  - HAIR COLOUR CHANGES [None]
